FAERS Safety Report 16558370 (Version 5)
Quarter: 2019Q4

REPORT INFORMATION
  Report Type: Spontaneous
  Country: DE (occurrence: DE)
  Receive Date: 20190711
  Receipt Date: 20191209
  Transmission Date: 20200122
  Serious: Yes (Hospitalization, Other)
  Sender: FDA-Public Use
  Company Number: DE-MYLANLABS-2019M1063209

PATIENT
  Sex: Male
  Weight: 99 kg

DRUGS (10)
  1. VALSARTAN. [Suspect]
     Active Substance: VALSARTAN
     Dosage: 1 DOSAGE FORM, 5XD
     Route: 065
     Dates: start: 20171020, end: 20171024
  2. METOPROLOL. [Concomitant]
     Active Substance: METOPROLOL
     Indication: HYPERTENSION
     Dosage: 95 MILLIGRAM, QD
     Route: 048
  3. VALSARTAN. [Suspect]
     Active Substance: VALSARTAN
     Indication: HYPERTENSION
     Dosage: 160 MILLIGRAM, QD
     Route: 065
     Dates: start: 201402, end: 201506
  4. METOHEXAL SUCC [Concomitant]
     Active Substance: METOPROLOL SUCCINATE
     Indication: PRODUCT USED FOR UNKNOWN INDICATION
     Dosage: 1 UNK
     Dates: start: 2014
  5. VALSARTAN AND HYDROCHLOROTHIAZIDE [Concomitant]
     Active Substance: HYDROCHLOROTHIAZIDE\VALSARTAN
     Dosage: 1 DOSAGE FORM
     Route: 065
     Dates: start: 20171020, end: 20171024
  6. VALSARTAN. [Suspect]
     Active Substance: VALSARTAN
     Dosage: 320 MG, QD
     Route: 065
     Dates: start: 201506, end: 201807
  7. METOHEXAL SUCC [Concomitant]
     Active Substance: METOPROLOL SUCCINATE
     Dosage: 1 DOSAGE FORM, QW
     Route: 065
     Dates: start: 20171018, end: 20171024
  8. VALSARTAN AND HYDROCHLOROTHIAZIDE [Concomitant]
     Active Substance: HYDROCHLOROTHIAZIDE\VALSARTAN
     Indication: PRODUCT USED FOR UNKNOWN INDICATION
     Dosage: 1 DOSAGE FORM, QD, (1-0-0)
     Route: 065
     Dates: start: 20171018, end: 20171018
  9. VALSARTAN. [Suspect]
     Active Substance: VALSARTAN
     Indication: HYPERTENSION
     Dosage: 320 MILLIGRAM, QD
     Route: 065
     Dates: start: 2015, end: 201807
  10. STEROFUNDIN [Concomitant]
     Active Substance: CALCIUM CHLORIDE\MAGNESIUM CHLORIDE\POTASSIUM CHLORIDE\SODIUM ACETATE\SODIUM CHLORIDE
     Indication: PRODUCT USED FOR UNKNOWN INDICATION
     Dosage: 100 MILLILITER, QD
     Route: 065
     Dates: start: 20171020, end: 20171020

REACTIONS (23)
  - Helicobacter gastritis [Unknown]
  - pH body fluid increased [Unknown]
  - Haemoglobin decreased [Unknown]
  - Duodenitis [Unknown]
  - Gastrointestinal submucosal tumour [Recovered/Resolved]
  - Back pain [Unknown]
  - Pain [Unknown]
  - Productive cough [Unknown]
  - Hypoaesthesia [Unknown]
  - Cholelithiasis [Unknown]
  - Blood creatine phosphokinase increased [Unknown]
  - Blood potassium decreased [Unknown]
  - Night sweats [Unknown]
  - PCO2 decreased [Unknown]
  - White blood cell count increased [Unknown]
  - Platelet count increased [Unknown]
  - Blood sodium decreased [Unknown]
  - Haematocrit decreased [Unknown]
  - Arteriosclerosis coronary artery [Unknown]
  - Cholangitis [Unknown]
  - Cholecystitis [Recovered/Resolved]
  - Oxygen saturation increased [Unknown]
  - PO2 increased [Unknown]

NARRATIVE: CASE EVENT DATE: 2017
